FAERS Safety Report 4693496-1 (Version None)
Quarter: 2005Q2

REPORT INFORMATION
  Report Type: 
  Country: None (occurrence: None)
  Receive Date: 20050615
  Receipt Date: 20050601
  Transmission Date: 20051028
  Serious: Yes (Death, Other)
  Sender: FDA-Public Use
  Company Number: USA050699415

PATIENT
  Age: 71 Year
  Sex: Female

DRUGS (4)
  1. XIGRIS [Suspect]
     Indication: SEPSIS
     Dates: start: 20050528, end: 20050529
  2. CIPRO [Concomitant]
  3. ZYVOX [Concomitant]
  4. LEVOPHED [Concomitant]

REACTIONS (8)
  - BLOOD BICARBONATE DECREASED [None]
  - BLOOD CREATININE INCREASED [None]
  - BLOOD PH DECREASED [None]
  - HAEMORRHAGE [None]
  - PCO2 DECREASED [None]
  - PLATELET COUNT DECREASED [None]
  - RESPIRATORY FAILURE [None]
  - WHITE BLOOD CELL COUNT INCREASED [None]
